FAERS Safety Report 7930876-2 (Version None)
Quarter: 2011Q4

REPORT INFORMATION
  Report Type: 
  Country: None (occurrence: None)
  Receive Date: 20111121
  Receipt Date: 20111111
  Transmission Date: 20120403
  Serious: Yes (Hospitalization, Other)
  Sender: FDA-Public Use
  Company Number: US-AMGEN-USASP2011046034

PATIENT
  Age: 19 Year
  Sex: Female
  Weight: 54.7 kg

DRUGS (7)
  1. ENBREL [Suspect]
     Dosage: 25 MG, 2 TIMES/WK
     Route: 058
     Dates: end: 20110805
  2. METHOTREXATE [Concomitant]
     Dosage: UNK
  3. PLAQUENIL [Concomitant]
     Dosage: UNK
  4. DILAUDID [Concomitant]
     Dosage: UNK
  5. PREVACID [Concomitant]
     Dosage: UNK
  6. ENBREL [Suspect]
     Dosage: 25 MG, 2 TIMES/WK
     Route: 058
     Dates: start: 20110823
  7. ENBREL [Suspect]
     Indication: RHEUMATOID ARTHRITIS
     Dosage: 25 MG, UNK
     Route: 058
     Dates: start: 20100607, end: 20110906

REACTIONS (5)
  - ABDOMINAL PAIN [None]
  - STAPHYLOCOCCAL SEPSIS [None]
  - SICKLE CELL ANAEMIA [None]
  - HOSPITALISATION [None]
  - CLOSTRIDIAL INFECTION [None]
